FAERS Safety Report 7969394 (Version 2)
Quarter: 2013Q1

REPORT INFORMATION
  Report Type: Report from Study
  Country: US (occurrence: US)
  Receive Date: 20110601
  Receipt Date: 20130201
  Transmission Date: 20140127
  Serious: Yes (Other)
  Sender: FDA-Public Use
  Company Number: US-ROCHE-778868

PATIENT
  Age: 7 Year
  Sex: Female

DRUGS (3)
  1. BEVACIZUMAB [Suspect]
     Indication: BRAIN STEM GLIOMA
     Route: 042
  2. TEMOZOLOMIDE [Suspect]
     Indication: BRAIN STEM GLIOMA
     Dosage: DAILY FOR 5 DAYS EVERY 28 DAYS
     Route: 065
  3. DEXAMETHASONE [Concomitant]

REACTIONS (4)
  - Lymphopenia [Unknown]
  - Pancreatitis [Recovered/Resolved]
  - Hypertension [Recovered/Resolved]
  - Impaired healing [Recovered/Resolved]
